FAERS Safety Report 17108587 (Version 1)
Quarter: 2019Q4

REPORT INFORMATION
  Report Type: Spontaneous
  Country: IT (occurrence: IT)
  Receive Date: 20191203
  Receipt Date: 20191203
  Transmission Date: 20200122
  Serious: Yes (Other)
  Sender: FDA-Public Use
  Company Number: IT-MYLANLABS-2019M1114400

PATIENT
  Age: 46 Year
  Sex: Female

DRUGS (5)
  1. CALCIUM LEVOFOLINATE [Concomitant]
     Active Substance: LEVOLEUCOVORIN CALCIUM
     Indication: RECTAL ADENOCARCINOMA
     Dosage: 330 MILLIGRAM, CYCLE
     Route: 042
     Dates: start: 20190923, end: 20190923
  2. FLUOROURACIL. [Concomitant]
     Active Substance: FLUOROURACIL
     Indication: RECTAL ADENOCARCINOMA
     Dosage: 500 MILLIGRAM, CYCLE
     Route: 040
     Dates: start: 20190923, end: 20190923
  3. FLUOROURACIL. [Concomitant]
     Active Substance: FLUOROURACIL
     Dosage: 3000 MILLIGRAM, CYCLE
     Route: 040
     Dates: start: 20190923
  4. OXALIPLATIN. [Suspect]
     Active Substance: OXALIPLATIN
     Indication: RECTAL ADENOCARCINOMA
     Dosage: 105 MILLIGRAM, CYCLE
     Route: 041
     Dates: start: 20190923, end: 20190923
  5. SOLDESAM [Concomitant]
     Active Substance: DEXAMETHASONE
     Indication: ANAPHYLAXIS PROPHYLAXIS
     Dosage: 12 MILLIGRAM, CYCLE
     Route: 042
     Dates: start: 20190923, end: 20190923

REACTIONS (6)
  - Hyperhidrosis [Recovered/Resolved]
  - Rash [Recovered/Resolved]
  - Anaphylactic reaction [Recovered/Resolved]
  - Retching [Recovered/Resolved]
  - Laryngospasm [Recovered/Resolved]
  - Tachycardia [Recovered/Resolved]

NARRATIVE: CASE EVENT DATE: 20190923
